FAERS Safety Report 8089192-3 (Version None)
Quarter: 2012Q1

REPORT INFORMATION
  Report Type: 
  Country: None (occurrence: None)
  Receive Date: 20120128
  Receipt Date: 20110616
  Transmission Date: 20120608
  Serious: No
  Sender: FDA-Public Use
  Company Number: US-ABBOTT-11P-163-0732856-00

PATIENT
  Sex: Female
  Weight: 119.4 kg

DRUGS (5)
  1. UNKNOWN BLOOD PRESSURE MEDICATION [Concomitant]
     Indication: HYPERTENSION
     Route: 048
  2. VITAMIN D [Concomitant]
     Indication: VITAMIN SUPPLEMENTATION
     Route: 048
  3. HUMIRA [Suspect]
     Indication: PSORIASIS
     Route: 058
     Dates: start: 20110606, end: 20110606
  4. FISH OIL [Concomitant]
     Indication: MINERAL SUPPLEMENTATION
     Route: 048
  5. HUMIRA [Suspect]
     Indication: PSORIATIC ARTHROPATHY
     Route: 058
     Dates: start: 20110529, end: 20110529

REACTIONS (3)
  - STOMATITIS [None]
  - RASH [None]
  - INJECTION SITE RASH [None]
